FAERS Safety Report 22928436 (Version 4)
Quarter: 2024Q3

REPORT INFORMATION
  Report Type: Spontaneous
  Country: JP (occurrence: JP)
  Receive Date: 20230911
  Receipt Date: 20240924
  Transmission Date: 20241016
  Serious: Yes (Hospitalization, Other)
  Sender: BRISTOL MYERS SQUIBB
  Company Number: JP-BRISTOL-MYERS SQUIBB COMPANY-2023-107403

PATIENT
  Age: 78 Year
  Sex: Male
  Weight: 55.9 kg

DRUGS (2)
  1. YERVOY [Suspect]
     Active Substance: IPILIMUMAB
     Indication: Non-small cell lung cancer recurrent
     Dosage: NUMBER OF ADMINISTRATIONS 2 TIMES
     Route: 041
     Dates: start: 20230608, end: 20230720
  2. OPDIVO [Suspect]
     Active Substance: NIVOLUMAB
     Indication: Non-small cell lung cancer recurrent
     Dosage: NUMBER OF ADMINISTRATIONS 2 TIMES
     Route: 041
     Dates: start: 20230608, end: 20230720

REACTIONS (6)
  - Immune-mediated hypothyroidism [Recovered/Resolved]
  - Immune-mediated enterocolitis [Recovering/Resolving]
  - Cholecystitis [Recovering/Resolving]
  - Immune-mediated pancreatitis [Recovering/Resolving]
  - Abdominal pain [Recovering/Resolving]
  - Non-small cell lung cancer [Unknown]

NARRATIVE: CASE EVENT DATE: 20230720
